FAERS Safety Report 14899450 (Version 1)
Quarter: 2018Q2

REPORT INFORMATION
  Report Type: Report from Study
  Country: None (occurrence: US)
  Receive Date: 20180516
  Receipt Date: 20180516
  Transmission Date: 20180711
  Serious: Yes (Hospitalization)
  Sender: FDA-Public Use
  Company Number: US-ABBVIE-18K-163-2346214-00

PATIENT
  Age: 73 Year
  Sex: Female
  Weight: 79 kg

DRUGS (1)
  1. DUOPA [Suspect]
     Active Substance: CARBIDOPA\LEVODOPA
     Indication: PARKINSON^S DISEASE
     Route: 050
     Dates: start: 20171218

REACTIONS (9)
  - Hypophagia [Not Recovered/Not Resolved]
  - Asthenia [Recovering/Resolving]
  - Fall [Recovering/Resolving]
  - Urinary tract infection [Recovering/Resolving]
  - Blood electrolytes decreased [Unknown]
  - Anger [Unknown]
  - Dizziness [Unknown]
  - Personality change [Not Recovered/Not Resolved]
  - Hallucination [Not Recovered/Not Resolved]

NARRATIVE: CASE EVENT DATE: 201804
